FAERS Safety Report 9003364 (Version 1)
Quarter: 2013Q1

REPORT INFORMATION
  Report Type: Spontaneous
  Country: US (occurrence: US)
  Receive Date: 20130108
  Receipt Date: 20130108
  Transmission Date: 20140127
  Serious: Yes (Other)
  Sender: FDA-Public Use
  Company Number: CHPA2012US026097

PATIENT
  Age: 66 Year
  Sex: Male
  Weight: 201.36 kg

DRUGS (8)
  1. EXCEDRIN MIGRAINE [Suspect]
     Indication: PAIN
     Dosage: 12-15 UNK, QD
     Route: 048
     Dates: end: 201201
  2. EXCEDRIN EXTRA STRENGTH [Suspect]
     Indication: PAIN
     Dosage: 12 TO 15 UNK, QD
     Route: 048
     Dates: end: 201201
  3. HYDROCODONE [Concomitant]
     Dosage: 10/325 UNK, A  MONTH
     Dates: end: 201208
  4. FENTANYL [Concomitant]
     Dosage: UNK, UNK
     Dates: start: 201208
  5. CELEBREX [Concomitant]
     Dosage: UNK, UNK
  6. ACTOS [Concomitant]
     Dosage: UNK, UNK
  7. PREVACID [Concomitant]
     Dosage: 2 DF, UNK
  8. EXCEDRIN MIGRAINE [Concomitant]
     Dosage: UNK, UNK

REACTIONS (12)
  - Hypertension [Not Recovered/Not Resolved]
  - Renal impairment [Not Recovered/Not Resolved]
  - Diabetes mellitus [Not Recovered/Not Resolved]
  - Sleep apnoea syndrome [Not Recovered/Not Resolved]
  - Narcolepsy [Not Recovered/Not Resolved]
  - Bladder dysfunction [Not Recovered/Not Resolved]
  - Excoriation [Not Recovered/Not Resolved]
  - Somnambulism [Not Recovered/Not Resolved]
  - Hallucination [Not Recovered/Not Resolved]
  - Blood cholesterol increased [Not Recovered/Not Resolved]
  - Headache [Unknown]
  - Overdose [Unknown]
